FAERS Safety Report 7779580-4 (Version None)
Quarter: 2011Q3

REPORT INFORMATION
  Report Type: 
  Country: None (occurrence: None)
  Receive Date: 20110927
  Receipt Date: 20110921
  Transmission Date: 20111222
  Serious: Yes (Life-Threatening)
  Sender: FDA-Public Use
  Company Number: US-ASTRAZENECA-2011SE26312

PATIENT
  Age: 36 Year
  Sex: Female
  Weight: 113.4 kg

DRUGS (4)
  1. CELEXA [Concomitant]
  2. SEROQUEL [Suspect]
     Route: 048
     Dates: end: 20110101
  3. SEROQUEL [Suspect]
     Route: 048
     Dates: start: 20110101
  4. SYMBALTA [Concomitant]

REACTIONS (1)
  - SUICIDAL IDEATION [None]
